FAERS Safety Report 6398872-7 (Version None)
Quarter: 2009Q4

REPORT INFORMATION
  Report Type: 
  Country: None (occurrence: None)
  Receive Date: 20091013
  Receipt Date: 20090910
  Transmission Date: 20100525
  Serious: Yes (Death)
  Sender: FDA-Public Use
  Company Number: US-BAXTER-2009BH003240

PATIENT
  Sex: Male

DRUGS (1)
  1. HEPARIN SODIUM INJECTION [Suspect]
     Indication: DRUG USE FOR UNKNOWN INDICATION
     Route: 065
     Dates: start: 20071207, end: 20071219

REACTIONS (5)
  - CARDIO-RESPIRATORY ARREST [None]
  - CLOSTRIDIUM DIFFICILE COLITIS [None]
  - EMPHYSEMA [None]
  - RENAL FAILURE [None]
  - SEPSIS [None]
